FAERS Safety Report 14474614 (Version 6)
Quarter: 2019Q4

REPORT INFORMATION
  Report Type: Spontaneous
  Country: FR (occurrence: FR)
  Receive Date: 20180201
  Receipt Date: 20191213
  Transmission Date: 20200122
  Serious: Yes (Hospitalization, Other)
  Sender: FDA-Public Use
  Company Number: FR-MYLANLABS-2018M1005895

PATIENT
  Age: 26 Year
  Sex: Female

DRUGS (16)
  1. BACLOFEN. [Interacting]
     Active Substance: BACLOFEN
     Dosage: 5 MG, TID
     Route: 065
     Dates: start: 2008
  2. TYSABRI [Suspect]
     Active Substance: NATALIZUMAB
     Dosage: UNK UNK,UNK
     Route: 065
     Dates: start: 2008
  3. BACLOFEN. [Interacting]
     Active Substance: BACLOFEN
     Dosage: 15 MILLIGRAM, QD (5 MG, TID)
     Route: 065
     Dates: start: 2008
  4. BACLOFEN. [Interacting]
     Active Substance: BACLOFEN
     Dosage: 30 MILLIGRAM, QD (10 MG.TID)
     Dates: start: 2008
  5. NATALIZUMAB [Concomitant]
     Active Substance: NATALIZUMAB
     Indication: MULTIPLE SCLEROSIS
     Dosage: UNK
     Route: 065
     Dates: start: 2008
  6. BACLOFEN. [Suspect]
     Active Substance: BACLOFEN
     Indication: MULTIPLE SCLEROSIS
     Dosage: TAPERED DOWN
     Route: 065
  7. TYSABRI [Suspect]
     Active Substance: NATALIZUMAB
     Indication: MULTIPLE SCLEROSIS
     Dosage: UNK
     Route: 065
  8. DALFAMPRIDINE. [Interacting]
     Active Substance: DALFAMPRIDINE
     Indication: GAIT DISTURBANCE
     Dosage: 30 MILLIGRAM, QD
  9. DALFAMPRIDINE. [Interacting]
     Active Substance: DALFAMPRIDINE
     Dosage: 10 MILLIGRAM, Q3H
     Route: 065
     Dates: start: 201306
  10. DALFAMPRIDINE. [Interacting]
     Active Substance: DALFAMPRIDINE
     Dosage: 10 MILLIGRAM, BID
     Route: 065
  11. BACLOFEN. [Interacting]
     Active Substance: BACLOFEN
     Dosage: 10 MILLIGRAM, Q8H
     Route: 065
     Dates: start: 2008
  12. DALFAMPRIDINE. [Interacting]
     Active Substance: DALFAMPRIDINE
     Indication: SECONDARY PROGRESSIVE MULTIPLE SCLEROSIS
     Dosage: 10 MG, TID
     Route: 065
  13. DALFAMPRIDINE. [Interacting]
     Active Substance: DALFAMPRIDINE
     Dosage: 20 MILLIGRAM, QD (10 MG BID)
     Route: 065
     Dates: start: 201306
  14. DALFAMPRIDINE. [Interacting]
     Active Substance: DALFAMPRIDINE
     Dosage: 30 MILLIGRAM, QD
     Route: 048
     Dates: start: 20130524, end: 20160516
  15. DALFAMPRIDINE. [Interacting]
     Active Substance: DALFAMPRIDINE
     Dosage: 30 MILLIGRAM, QD (10 MG, TID)
     Route: 048
  16. TAMSULOSIN [Concomitant]
     Active Substance: TAMSULOSIN
     Indication: SECONDARY PROGRESSIVE MULTIPLE SCLEROSIS
     Dosage: 0.4 MILLIGRAM, QD
     Route: 065

REACTIONS (4)
  - Myoclonus [Recovered/Resolved]
  - Generalised tonic-clonic seizure [Recovered/Resolved]
  - Drug interaction [Unknown]
  - Status epilepticus [Recovered/Resolved]

NARRATIVE: CASE EVENT DATE: 20160316
